FAERS Safety Report 9734171 (Version 1)
Quarter: 2013Q4

REPORT INFORMATION
  Report Type: Spontaneous
  Country: US (occurrence: US)
  Receive Date: 20131205
  Receipt Date: 20131205
  Transmission Date: 20140711
  Serious: Yes (Other)
  Sender: FDA-Public Use
  Company Number: US-ACTAVIS-2013-21824

PATIENT
  Sex: Female

DRUGS (1)
  1. ALPRAZOLAM (WATSON LABORATORIES) [Suspect]
     Indication: PRODUCT USED FOR UNKNOWN INDICATION
     Dosage: UNK, UNKNOWN
     Route: 065

REACTIONS (6)
  - Amnesia [Unknown]
  - Drug ineffective [Unknown]
  - Sinus disorder [Unknown]
  - Dysphagia [Unknown]
  - Breathing-related sleep disorder [Unknown]
  - Respiratory disorder [Unknown]
